FAERS Safety Report 7299043-2 (Version None)
Quarter: 2011Q1

REPORT INFORMATION
  Report Type: 
  Country: None (occurrence: None)
  Receive Date: 20110217
  Receipt Date: 20110208
  Transmission Date: 20110831
  Serious: Yes (Other)
  Sender: FDA-Public Use
  Company Number: JP-ASTRAZENECA-2011SE08220

PATIENT
  Age: 72 Year
  Sex: Female

DRUGS (3)
  1. MEVALOTIN [Concomitant]
     Route: 048
  2. ASPIRIN [Concomitant]
     Route: 048
  3. ECARD COMBINATION HD [Suspect]
     Route: 048
     Dates: start: 20110124

REACTIONS (1)
  - CONVULSION [None]
